FAERS Safety Report 7103631-3 (Version None)
Quarter: 2010Q4

REPORT INFORMATION
  Report Type: 
  Country: None (occurrence: None)
  Receive Date: 20101115
  Receipt Date: 20101108
  Transmission Date: 20110411
  Serious: Yes (Other)
  Sender: FDA-Public Use
  Company Number: US-B.I. PHARMACEUTICALS,INC./RIDGEFIELD-2010-BP-12471BP

PATIENT
  Sex: Female

DRUGS (2)
  1. MOBIC [Suspect]
  2. CELEBREX [Suspect]

REACTIONS (2)
  - BLOOD PRESSURE ABNORMAL [None]
  - RENAL IMPAIRMENT [None]
